FAERS Safety Report 5413947-4 (Version None)
Quarter: 2007Q3

REPORT INFORMATION
  Report Type: 
  Country: None (occurrence: None)
  Receive Date: 20070814
  Receipt Date: 20070806
  Transmission Date: 20080115
  Serious: Yes (Hospitalization)
  Sender: FDA-Public Use
  Company Number: DE-BOEHRINGER INGELHEIM PHARMACEUTICALS, INC.-2007-DE-03347DE

PATIENT
  Sex: Male

DRUGS (4)
  1. SIFROL [Suspect]
     Indication: HYPOKINESIA
  2. AMLODIPINE [Concomitant]
  3. DELIX PLUS [Concomitant]
     Dosage: 5/25 MG
  4. ALLOPURINOL [Concomitant]

REACTIONS (4)
  - POLYNEUROPATHY [None]
  - SYNCOPE [None]
  - URINARY TRACT INFECTION [None]
  - VASCULITIS [None]
